FAERS Safety Report 4384180-2 (Version None)
Quarter: 2004Q2

REPORT INFORMATION
  Report Type: 
  Country: None (occurrence: None)
  Receive Date: 20040621
  Receipt Date: 20040610
  Transmission Date: 20050107
  Serious: Yes (Death)
  Sender: FDA-Public Use
  Company Number: 2004218613CO

PATIENT
  Sex: Female

DRUGS (1)
  1. FRAGMIN [Suspect]
     Indication: DEEP VEIN THROMBOSIS
     Dosage: 5000 U, BID, SUBCUTANEOUS
     Route: 058

REACTIONS (2)
  - CONVULSION [None]
  - POST PROCEDURAL HAEMORRHAGE [None]
